FAERS Safety Report 8836525 (Version 1)
Quarter: 2012Q4

REPORT INFORMATION
  Report Type: Spontaneous
  Country: US (occurrence: None)
  Receive Date: 20121009
  Receipt Date: 20121009
  Transmission Date: 20130627
  Serious: Yes (Life-Threatening, Hospitalization)
  Sender: FDA-Public Use
  Company Number: NES-AE-12-012

PATIENT
  Age: 20 Year
  Sex: Male

DRUGS (2)
  1. OXYCODONE [Suspect]
  2. ALPRAZOLAM [Suspect]

REACTIONS (9)
  - Poisoning [None]
  - Impaired driving ability [None]
  - Mental status changes [None]
  - Incorrect dose administered [None]
  - Blood pressure increased [None]
  - Somnolence [None]
  - Pericarditis [None]
  - Cardiomyopathy [None]
  - Left ventricular dysfunction [None]
